FAERS Safety Report 13465858 (Version 1)
Quarter: 2017Q2

REPORT INFORMATION
  Report Type: Spontaneous
  Country: US (occurrence: US)
  Receive Date: 20170421
  Receipt Date: 20170421
  Transmission Date: 20170830
  Serious: No
  Sender: FDA-Public Use
  Company Number: US-BAYER-2017-076443

PATIENT
  Sex: Female
  Weight: 54 kg

DRUGS (1)
  1. CLARITIN [Suspect]
     Active Substance: LORATADINE
     Indication: CHEMOTHERAPY
     Dosage: 1 DF, QD
     Route: 065
     Dates: start: 2017

REACTIONS (1)
  - Off label use [Unknown]
